FAERS Safety Report 23296665 (Version 2)
Quarter: 2023Q4

REPORT INFORMATION
  Report Type: Spontaneous
  Country: BR (occurrence: BR)
  Receive Date: 20231214
  Receipt Date: 20231225
  Transmission Date: 20240110
  Serious: Yes (Other)
  Sender: FDA-Public Use
  Company Number: BR-BAXTER-2023BAX038064

PATIENT
  Age: 48 Year
  Sex: Female
  Weight: 62 kg

DRUGS (3)
  1. IRON [Suspect]
     Active Substance: IRON
     Indication: Anaemia
     Dosage: 2 AMPOULES DILUTED IN 200 ML OF SALINE SOLUTION, INFUSION TIME 2 HOURS
     Route: 042
  2. SODIUM CHLORIDE [Suspect]
     Active Substance: SODIUM CHLORIDE
     Indication: Medication dilution
     Dosage: 200 ML (USED TO DILUTE 2 AMPOULES) INFUSION TIME 2 HOURS
     Route: 042
  3. LORATADINE [Suspect]
     Active Substance: LORATADINE
     Dosage: UNK
     Route: 065
     Dates: start: 20231204, end: 20231204

REACTIONS (6)
  - Depressed level of consciousness [Recovered/Resolved]
  - Fatigue [Recovered/Resolved]
  - Nausea [Recovered/Resolved]
  - Erythema [Recovered/Resolved]
  - Malaise [Recovering/Resolving]
  - Pruritus [Recovered/Resolved]

NARRATIVE: CASE EVENT DATE: 20231204
